FAERS Safety Report 21937115 (Version 1)
Quarter: 2023Q1

REPORT INFORMATION
  Report Type: Other
  Country: US (occurrence: None)
  Receive Date: 20230201
  Receipt Date: 20230201
  Transmission Date: 20230417
  Serious: Yes (Hospitalization)
  Sender: FDA-Public Use
  Company Number: US-ROCHE-3272579

PATIENT
  Age: 65 Year
  Sex: Female

DRUGS (2)
  1. OCREVUS [Suspect]
     Active Substance: OCRELIZUMAB
     Indication: Relapsing-remitting multiple sclerosis
     Dosage: 600MG IV EVERY 6 MONTHS
     Route: 042
     Dates: start: 20181231
  2. ANTIBIOTICS (UNK INGREDIENTS) [Concomitant]

REACTIONS (1)
  - Osteomyelitis [Not Recovered/Not Resolved]
